FAERS Safety Report 24343422 (Version 1)
Quarter: 2024Q3

REPORT INFORMATION
  Report Type: Other
  Country: SK (occurrence: SK)
  Receive Date: 20240920
  Receipt Date: 20240920
  Transmission Date: 20241017
  Serious: Yes (Other)
  Sender: Steriscience PTE
  Company Number: SK-PFIZER INC-2019158553

PATIENT
  Age: 55 Year
  Sex: Female
  Weight: 70 kg

DRUGS (5)
  1. VANCOMYCIN [Suspect]
     Active Substance: VANCOMYCIN
     Indication: Prophylaxis
     Dosage: UNK (COMBINATION WITH METRONIDAZOLE )
     Route: 065
     Dates: start: 2018
  2. METRONIDAZOLE [Suspect]
     Active Substance: METRONIDAZOLE
     Indication: Prophylaxis
     Dosage: UNK
     Route: 065
     Dates: start: 2018, end: 2018
  3. FLUCONAZOLE [Suspect]
     Active Substance: FLUCONAZOLE
     Indication: Prophylaxis
     Dosage: UNK
     Route: 065
     Dates: start: 2018
  4. MEROPENEM [Suspect]
     Active Substance: MEROPENEM
     Indication: Antibiotic therapy
     Dosage: UNK; MONOTHERAPY
     Route: 065
     Dates: start: 2018, end: 2018
  5. CYCLOSPORINE [Suspect]
     Active Substance: CYCLOSPORINE
     Indication: Prophylaxis
     Dosage: UNK
     Route: 065
     Dates: start: 2018

REACTIONS (6)
  - Neutropenic colitis [Recovered/Resolved]
  - Liver abscess [Unknown]
  - Clostridium difficile colitis [Unknown]
  - Neutropenia [Recovered/Resolved]
  - Abdominal pain [Unknown]
  - Dyspepsia [Unknown]

NARRATIVE: CASE EVENT DATE: 20180101
